FAERS Safety Report 24382143 (Version 1)
Quarter: 2024Q4

REPORT INFORMATION
  Report Type: Spontaneous
  Country: ES (occurrence: ES)
  Receive Date: 20241001
  Receipt Date: 20241001
  Transmission Date: 20250115
  Serious: Yes (Hospitalization)
  Sender: AMGEN
  Company Number: ES-AMGEN-ESPSP2024191284

PATIENT
  Age: 15 Year
  Sex: Female
  Weight: 78 kg

DRUGS (6)
  1. ADALIMUMAB [Suspect]
     Active Substance: ADALIMUMAB
     Indication: Hidradenitis
     Dosage: UNK, 2.0 PRE-FILLED SYRINGE EVERY 15
     Route: 058
     Dates: start: 20240823
  2. DIENOGEST\ETHINYL ESTRADIOL [Concomitant]
     Active Substance: DIENOGEST\ETHINYL ESTRADIOL
     Dosage: UNK (2.0 PRE-FILLED SYRINGE EVERY 15 )
     Dates: start: 20240522
  3. EPIDUO FORTE [Concomitant]
     Active Substance: ADAPALENE\BENZOYL PEROXIDE
     Indication: Acne
     Dosage: UNK (1 APPLICATION EVERY 24H)
     Dates: start: 20240720
  4. Nolotil [Concomitant]
     Indication: Abdominal pain
     Dosage: UNK
     Dates: start: 20220228
  5. ALDACTONE [Concomitant]
     Active Substance: SPIRONOLACTONE
     Dosage: UNK
     Dates: start: 20240522
  6. OMEPRAZOLE STADA [Concomitant]
     Indication: Abdominal pain
     Dosage: UNK (25.0 MG BREAKFAST, 40.0 MG BEFORE-BREAKFAST)
     Dates: start: 20220301

REACTIONS (2)
  - Drug interaction [Recovering/Resolving]
  - Pulmonary embolism [Recovering/Resolving]

NARRATIVE: CASE EVENT DATE: 20240909
